APPROVED DRUG PRODUCT: DEXTROAMP SACCHARATE, AMP ASPARTATE, DEXTROAMP SULFATE AND AMP SULFATE
Active Ingredient: AMPHETAMINE ASPARTATE; AMPHETAMINE SULFATE; DEXTROAMPHETAMINE SACCHARATE; DEXTROAMPHETAMINE SULFATE
Strength: 3.75MG;3.75MG;3.75MG;3.75MG
Dosage Form/Route: CAPSULE, EXTENDED RELEASE;ORAL
Application: A210651 | Product #003 | TE Code: AB1
Applicant: RHODES PHARMACEUTICALS LP
Approved: May 17, 2019 | RLD: No | RS: No | Type: RX